FAERS Safety Report 5981619-3 (Version None)
Quarter: 2008Q4

REPORT INFORMATION
  Report Type: 
  Country: None (occurrence: None)
  Receive Date: 20081205
  Receipt Date: 20081127
  Transmission Date: 20090506
  Serious: Yes (Disabling)
  Sender: FDA-Public Use
  Company Number: FR-JNJFOC-20081104348

PATIENT
  Age: 27 Year
  Sex: Female
  Weight: 49 kg

DRUGS (12)
  1. DURAGESIC-100 [Suspect]
     Indication: PAIN
     Route: 062
  2. ACTIQ [Suspect]
     Indication: PAIN
  3. PROGRAF [Concomitant]
     Dosage: 2 MG IN THE MORNING/2.5 MG IN THE EVENING
     Route: 048
  4. IMUREL [Concomitant]
     Dosage: 2 MG IN THE MORNING/2.5 MG IN THE EVENING
     Route: 048
  5. CORTANCYL [Concomitant]
     Dosage: 2 MG IN THE MORNING/2.5 MG IN THE EVENING
     Route: 048
  6. URSOLVAN [Concomitant]
     Dosage: 2 MG IN THE MORNING/2.5 MG IN THE EVENING
     Route: 048
  7. NEXIUM [Concomitant]
     Dosage: 2 MG IN THE MORNING/2.5 MG IN THE EVENING
     Route: 048
  8. BACTRIM DS [Concomitant]
     Dosage: 2 MG IN THE MORNING/2.5 MG IN THE EVENING
     Route: 048
  9. TOCO 500 [Concomitant]
     Dosage: 2 MG IN THE MORNING/2.5 MG IN THE EVENING
     Route: 048
  10. A 313 [Concomitant]
     Dosage: 2 MG IN THE MORNING/2.5 MG IN THE EVENING
     Route: 048
  11. IDEOS [Concomitant]
     Dosage: 2 MG IN THE MORNING/2.5 MG IN THE EVENING
     Route: 048
  12. CREON [Concomitant]
     Dosage: 2 MG IN THE MORNING/2.5 MG IN THE EVENING
     Route: 048

REACTIONS (5)
  - ASTHENIA [None]
  - FATIGUE [None]
  - PRODUCT QUALITY ISSUE [None]
  - SOMNOLENCE [None]
  - TINNITUS [None]
